FAERS Safety Report 17527873 (Version 2)
Quarter: 2020Q2

REPORT INFORMATION
  Report Type: Spontaneous
  Country: JP (occurrence: JP)
  Receive Date: 20200311
  Receipt Date: 20200416
  Transmission Date: 20200713
  Serious: Yes (Hospitalization, Other)
  Sender: FDA-Public Use
  Company Number: JP-BAYER-2020-022799

PATIENT
  Age: 47 Year
  Sex: Male
  Weight: 70.7 kg

DRUGS (1)
  1. STIVARGA [Suspect]
     Active Substance: REGORAFENIB
     Indication: COLORECTAL CANCER RECURRENT
     Dosage: 120 MG DAILY, 3 WEEKS CONSECUTIVE ADMINISTRATION AND 1 WEEK OFF
     Route: 048
     Dates: start: 20200204, end: 20200206

REACTIONS (8)
  - Metastases to liver [Not Recovered/Not Resolved]
  - Malaise [Recovering/Resolving]
  - Hepatic function abnormal [Recovering/Resolving]
  - Eosinophil count increased [Recovering/Resolving]
  - Cholangitis [Recovering/Resolving]
  - Tumour associated fever [Recovering/Resolving]
  - Off label use [None]
  - Decreased appetite [Recovering/Resolving]

NARRATIVE: CASE EVENT DATE: 20200204
